FAERS Safety Report 5690076-6 (Version None)
Quarter: 2008Q1

REPORT INFORMATION
  Report Type: 
  Country: None (occurrence: None)
  Receive Date: 20080331
  Receipt Date: 20080331
  Transmission Date: 20080703
  Serious: No
  Sender: FDA-Public Use
  Company Number: None

PATIENT
  Age: 5 Year
  Sex: Male
  Weight: 24.4942 kg

DRUGS (1)
  1. CLARINEX [Suspect]
     Indication: SEASONAL ALLERGY
     Dosage: ONCE DAILY PO
     Route: 048
     Dates: start: 20070301, end: 20071031

REACTIONS (2)
  - DYSPHEMIA [None]
  - SPEECH DISORDER [None]
